FAERS Safety Report 24029973 (Version 1)
Quarter: 2024Q2

REPORT INFORMATION
  Report Type: Spontaneous
  Country: PL (occurrence: PL)
  Receive Date: 20240628
  Receipt Date: 20240628
  Transmission Date: 20240716
  Serious: Yes (Hospitalization, Other)
  Sender: FDA-Public Use
  Company Number: PL-JNJFOC-20240658032

PATIENT
  Age: 62 Year
  Sex: Female

DRUGS (7)
  1. TECVAYLI [Suspect]
     Active Substance: TECLISTAMAB-CQYV
     Indication: Plasma cell myeloma
     Route: 065
     Dates: start: 20230913
  2. TECVAYLI [Suspect]
     Active Substance: TECLISTAMAB-CQYV
     Route: 065
     Dates: start: 20230915
  3. TECVAYLI [Suspect]
     Active Substance: TECLISTAMAB-CQYV
     Route: 065
     Dates: start: 20230920
  4. TELMIZEK HCT [Concomitant]
     Indication: Product used for unknown indication
     Dosage: 80 MG+12.5 MG 1X
     Route: 065
  5. ACYCLOVIR [Concomitant]
     Active Substance: ACYCLOVIR
     Indication: Product used for unknown indication
     Dosage: 2X400MG
     Route: 065
  6. COTRIMOXAZOLE [Concomitant]
     Active Substance: SULFAMETHOXAZOLE\TRIMETHOPRIM
     Indication: Product used for unknown indication
     Dosage: 1X1 ON MON, WED, FRI
     Route: 065
  7. ENOXAPARIN SODIUM [Concomitant]
     Active Substance: ENOXAPARIN SODIUM
     Indication: Product used for unknown indication
     Route: 058

REACTIONS (9)
  - Plasma cell leukaemia [Unknown]
  - Plasma cell myeloma [Unknown]
  - Neutropenia [Recovered/Resolved]
  - Cytokine release syndrome [Recovered/Resolved]
  - Upper respiratory tract infection [Unknown]
  - Oral candidiasis [Unknown]
  - Otitis media [Unknown]
  - Oropharyngeal pain [Unknown]
  - Bronchitis [Unknown]

NARRATIVE: CASE EVENT DATE: 20240320
